FAERS Safety Report 14497664 (Version 1)
Quarter: 2018Q1

REPORT INFORMATION
  Report Type: Spontaneous
  Country: US (occurrence: US)
  Receive Date: 20180207
  Receipt Date: 20180207
  Transmission Date: 20180509
  Serious: Yes (Other)
  Sender: FDA-Public Use
  Company Number: US-JNJFOC-20180135756

PATIENT
  Age: 73 Year
  Sex: Male
  Weight: 113.4 kg

DRUGS (4)
  1. XARELTO [Suspect]
     Active Substance: RIVAROXABAN
     Indication: PULMONARY THROMBOSIS
     Route: 048
     Dates: start: 201709
  2. BYSTOLIC [Concomitant]
     Active Substance: NEBIVOLOL HYDROCHLORIDE
     Indication: HYPERTENSION
     Route: 065
  3. TRAMADOL. [Concomitant]
     Active Substance: TRAMADOL
     Indication: ARTHRALGIA
     Route: 065
     Dates: start: 2013
  4. TRAMADOL. [Concomitant]
     Active Substance: TRAMADOL
     Indication: SPINAL OPERATION
     Route: 065
     Dates: start: 2013

REACTIONS (5)
  - Abdominal discomfort [Not Recovered/Not Resolved]
  - Wrong technique in product usage process [Unknown]
  - Inappropriate schedule of drug administration [Unknown]
  - Urticaria [Unknown]
  - Contrast media reaction [Unknown]

NARRATIVE: CASE EVENT DATE: 2017
